FAERS Safety Report 7235971-1 (Version None)
Quarter: 2011Q1

REPORT INFORMATION
  Report Type: 
  Country: None (occurrence: None)
  Receive Date: 20110120
  Receipt Date: 20110117
  Transmission Date: 20110831
  Serious: Yes (Hospitalization, Other)
  Sender: FDA-Public Use
  Company Number: B0684277A

PATIENT
  Sex: Male

DRUGS (7)
  1. FLORID [Concomitant]
     Indication: PNEUMONIA
     Dosage: 300MG PER DAY
     Route: 048
     Dates: start: 20101025, end: 20101103
  2. PAXIL [Suspect]
     Indication: PANIC DISORDER
     Dosage: 10MG PER DAY
     Route: 048
     Dates: start: 20101013, end: 20101028
  3. DASEN [Concomitant]
     Indication: PNEUMONIA
     Dosage: 30MG PER DAY
     Route: 048
     Dates: start: 20101013
  4. BACTRIM [Concomitant]
     Indication: PNEUMONIA STAPHYLOCOCCAL
     Dosage: 4IUAX PER DAY
     Route: 048
     Dates: start: 20101020
  5. MINOMYCIN [Concomitant]
     Indication: PNEUMONIA
     Dosage: 200MG PER DAY
     Route: 048
     Dates: start: 20101020
  6. MUCODYNE [Concomitant]
     Indication: PNEUMONIA
     Dosage: 1500MG PER DAY
     Route: 048
     Dates: start: 20101015
  7. GENINAX [Concomitant]
     Indication: PRODUCTIVE COUGH
     Route: 048
     Dates: start: 20101015

REACTIONS (6)
  - PRODUCTIVE COUGH [None]
  - BLOOD CHLORIDE DECREASED [None]
  - BLOOD SODIUM DECREASED [None]
  - HYPOXIA [None]
  - BLOOD UREA INCREASED [None]
  - INAPPROPRIATE ANTIDIURETIC HORMONE SECRETION [None]
